FAERS Safety Report 12738106 (Version 11)
Quarter: 2017Q1

REPORT INFORMATION
  Report Type: Report from Study
  Country: FI (occurrence: FI)
  Receive Date: 20160913
  Receipt Date: 20170223
  Transmission Date: 20170428
  Serious: Yes (Hospitalization, Other)
  Sender: FDA-Public Use
  Company Number: FI-SA-2015SA076433

PATIENT
  Age: 43 Year
  Sex: Male
  Weight: 91.9 kg

DRUGS (40)
  1. SOLU-MEDROL [Concomitant]
     Active Substance: METHYLPREDNISOLONE SODIUM SUCCINATE
     Indication: PROPHYLAXIS
     Route: 042
     Dates: start: 20160426, end: 20160428
  2. PANADOL FORTE [Concomitant]
     Active Substance: ACETAMINOPHEN\CAFFEINE
     Indication: PROPHYLAXIS
     Route: 048
     Dates: start: 20160426, end: 20160428
  3. ZOPINOX [Concomitant]
     Active Substance: ZOPICLONE
     Indication: DRUG THERAPY
     Route: 048
     Dates: start: 20051118
  4. KETIPINOR [Concomitant]
     Active Substance: QUETIAPINE FUMARATE
     Indication: INSOMNIA
     Route: 048
     Dates: start: 20100906, end: 20160131
  5. BURANA [Concomitant]
     Active Substance: IBUPROFEN
     Indication: HEADACHE
     Route: 048
     Dates: start: 20150419, end: 20150521
  6. SOMAC [Concomitant]
     Active Substance: PANTOPRAZOLE SODIUM
     Indication: PROPHYLAXIS
     Route: 048
     Dates: start: 20160426
  7. PEGORION [Concomitant]
     Active Substance: POLYETHYLENE GLYCOL 4000
     Indication: CONSTIPATION
     Route: 048
     Dates: start: 20050101
  8. INSOMIN [Concomitant]
     Indication: DRUG THERAPY
     Route: 048
     Dates: start: 20081217
  9. GEFINA [Concomitant]
     Indication: ALOPECIA
     Route: 048
     Dates: start: 20100101
  10. PROPRAL [Concomitant]
     Indication: SINUS TACHYCARDIA
     Route: 048
     Dates: start: 19970101
  11. BURANA [Concomitant]
     Active Substance: IBUPROFEN
     Indication: PYREXIA
     Route: 048
     Dates: start: 20150415, end: 20150415
  12. ZOPINOX [Concomitant]
     Active Substance: ZOPICLONE
     Indication: INSOMNIA
     Route: 048
     Dates: start: 20051118
  13. GEFINA [Concomitant]
     Indication: DRUG THERAPY
     Route: 048
     Dates: start: 20100101
  14. KETIPINOR [Concomitant]
     Active Substance: QUETIAPINE FUMARATE
     Indication: DRUG THERAPY
     Route: 048
     Dates: start: 20100906, end: 20160131
  15. KETIPINOR [Concomitant]
     Active Substance: QUETIAPINE FUMARATE
     Indication: INSOMNIA
     Route: 048
     Dates: start: 20160201
  16. ACYCLOVIR. [Concomitant]
     Active Substance: ACYCLOVIR
  17. SOLU-MEDROL [Concomitant]
     Active Substance: METHYLPREDNISOLONE SODIUM SUCCINATE
     Indication: PROPHYLAXIS
     Route: 042
     Dates: start: 20150413, end: 20150417
  18. ACLOVIR [Concomitant]
     Indication: PROPHYLAXIS
     Route: 048
     Dates: start: 20160426
  19. PANADOL FORTE [Concomitant]
     Active Substance: ACETAMINOPHEN\CAFFEINE
     Indication: PROPHYLAXIS
     Route: 048
     Dates: start: 20150413, end: 20150417
  20. LEMTRADA [Suspect]
     Active Substance: ALEMTUZUMAB
     Indication: MULTIPLE SCLEROSIS RELAPSE
     Route: 042
     Dates: start: 20150413, end: 20150417
  21. SOMAC [Concomitant]
     Active Substance: PANTOPRAZOLE SODIUM
     Indication: PROPHYLAXIS
     Route: 048
     Dates: start: 20140709
  22. PEGORION [Concomitant]
     Active Substance: POLYETHYLENE GLYCOL 4000
     Indication: DRUG THERAPY
     Route: 048
     Dates: start: 20050101
  23. SIRDALUD [Concomitant]
     Active Substance: TIZANIDINE
     Indication: DRUG THERAPY
     Route: 048
     Dates: start: 20130412
  24. SIRDALUD [Concomitant]
     Active Substance: TIZANIDINE
     Indication: HEADACHE
     Route: 048
     Dates: start: 20130412
  25. KETIPINOR [Concomitant]
     Active Substance: QUETIAPINE FUMARATE
     Indication: DRUG THERAPY
     Route: 048
     Dates: start: 20160201
  26. PREDNISOLONE. [Concomitant]
     Active Substance: PREDNISOLONE
     Indication: DRUG THERAPY
     Route: 048
     Dates: start: 20150423, end: 20150423
  27. CORTISONE [Concomitant]
     Active Substance: CORTISONE\HYDROCORTISONE
  28. ACLOVIR [Concomitant]
     Indication: PROPHYLAXIS
     Route: 048
     Dates: start: 20150413, end: 20150713
  29. HISTEC [Concomitant]
     Active Substance: CETIRIZINE HYDROCHLORIDE
     Indication: PROPHYLAXIS
     Route: 048
     Dates: start: 20150413, end: 20150417
  30. BURANA [Concomitant]
     Active Substance: IBUPROFEN
     Indication: PYREXIA
     Route: 048
     Dates: start: 20150522
  31. LEMTRADA [Suspect]
     Active Substance: ALEMTUZUMAB
     Indication: MULTIPLE SCLEROSIS RELAPSE
     Route: 042
     Dates: start: 20160426, end: 20160428
  32. HISTEC [Concomitant]
     Active Substance: CETIRIZINE HYDROCHLORIDE
     Indication: PROPHYLAXIS
     Route: 048
     Dates: start: 20160426, end: 20160428
  33. INSOMIN [Concomitant]
     Indication: INSOMNIA
     Route: 048
     Dates: start: 20081217
  34. DIMETICONE [Concomitant]
     Active Substance: DIMETHICONE
     Indication: DRUG THERAPY
     Dosage: 5 DROP
     Route: 048
     Dates: start: 20150414, end: 20150414
  35. CUPLATON [Concomitant]
     Indication: LACTOSE INTOLERANCE
     Dosage: 10 DROP
     Route: 048
     Dates: start: 20150415, end: 20150415
  36. NOVORAPID [Concomitant]
     Active Substance: INSULIN ASPART
     Indication: PROPHYLAXIS
     Route: 058
     Dates: start: 20160427, end: 20160427
  37. BURANA [Concomitant]
     Active Substance: IBUPROFEN
     Indication: HEADACHE
     Route: 048
     Dates: start: 20150415, end: 20150415
  38. BURANA [Concomitant]
     Active Substance: IBUPROFEN
     Indication: PYREXIA
     Route: 048
     Dates: start: 20150419, end: 20150521
  39. BURANA [Concomitant]
     Active Substance: IBUPROFEN
     Indication: HEADACHE
     Route: 048
     Dates: start: 20150522
  40. CUPLATON [Concomitant]
     Indication: LACTOSE INTOLERANCE
     Route: 048
     Dates: start: 20150414, end: 20150414

REACTIONS (26)
  - Herpes zoster [Recovered/Resolved]
  - Nausea [Recovered/Resolved]
  - Oropharyngeal pain [Recovering/Resolving]
  - Hyperthyroidism [Not Recovered/Not Resolved]
  - Tooth fracture [Recovered/Resolved]
  - Peripheral swelling [Recovered/Resolved]
  - Tachycardia [Recovered/Resolved]
  - Hepatic enzyme increased [Recovered/Resolved]
  - C-reactive protein increased [Recovered/Resolved]
  - Oropharyngeal pain [Recovered/Resolved]
  - Anal fissure [Recovering/Resolving]
  - Anal infection [Recovered/Resolved]
  - Thrombophlebitis [Recovered/Resolved]
  - Oropharyngeal pain [Recovered/Resolved]
  - Rash [Recovered/Resolved]
  - Electrocardiogram abnormal [Recovered/Resolved]
  - Hypothyroidism [Recovered/Resolved with Sequelae]
  - Fatigue [Not Recovered/Not Resolved]
  - Prostatitis [Recovering/Resolving]
  - Folliculitis [Recovered/Resolved]
  - Headache [Recovered/Resolved]
  - Myalgia [Recovered/Resolved]
  - Fatigue [Recovered/Resolved]
  - Hyperthyroidism [Recovered/Resolved]
  - Immune thrombocytopenic purpura [Recovered/Resolved]
  - Nasopharyngitis [Recovered/Resolved]

NARRATIVE: CASE EVENT DATE: 20150413
